FAERS Safety Report 9343537 (Version 2)
Quarter: 2013Q3

REPORT INFORMATION
  Report Type: Spontaneous
  Country: US (occurrence: US)
  Receive Date: 20130612
  Receipt Date: 20130806
  Transmission Date: 20140515
  Serious: No
  Sender: FDA-Public Use
  Company Number: US-B.I. PHARMACEUTICALS,INC./RIDGEFIELD-2013-BI-16126BP

PATIENT
  Sex: Female
  Weight: 66.67 kg

DRUGS (3)
  1. MIRAPEX [Suspect]
     Indication: RESTLESS LEGS SYNDROME
     Dosage: 0.25 MG
     Route: 048
     Dates: start: 201201
  2. RANITIDINE [Concomitant]
     Indication: GASTROOESOPHAGEAL REFLUX DISEASE
     Dosage: 300 MG
     Route: 048
     Dates: start: 20130415
  3. UTIRA-C [Concomitant]
     Indication: BLADDER SPASM
     Route: 048
     Dates: start: 20130715

REACTIONS (2)
  - Insomnia [Unknown]
  - Drug ineffective [Unknown]
